FAERS Safety Report 6567218-3 (Version None)
Quarter: 2010Q1

REPORT INFORMATION
  Report Type: 
  Country: None (occurrence: None)
  Receive Date: 20100128
  Receipt Date: 20100113
  Transmission Date: 20100710
  Serious: Yes (Death, Hospitalization)
  Sender: FDA-Public Use
  Company Number: 2010AC000009

PATIENT
  Age: 69 Year
  Sex: Male

DRUGS (47)
  1. DIGOXIN [Suspect]
     Dosage: 0.25 MG;QD; PO
     Route: 048
     Dates: start: 20081001
  2. SYNTHROID [Concomitant]
  3. XOPENEX [Concomitant]
  4. PRINIVIL [Concomitant]
  5. PACERONE [Concomitant]
  6. LANTUS [Concomitant]
  7. FUROSEMIDE [Concomitant]
  8. ASPIRIN [Concomitant]
  9. THEO-DUR [Concomitant]
  10. K-DUR [Concomitant]
  11. IMDUR [Concomitant]
  12. NORCO [Concomitant]
  13. NOVOLIN [Concomitant]
  14. LEVAQUIN [Concomitant]
  15. CLINAMYCIN [Concomitant]
  16. MS CONTIN [Concomitant]
  17. COREG [Concomitant]
  18. FERROUS SULFATE TAB [Concomitant]
  19. HYDROCODONE [Concomitant]
  20. HYDROXYZINE [Concomitant]
  21. INSULIN [Concomitant]
  22. HUMALOG [Concomitant]
  23. LAMOTRIGINE [Concomitant]
  24. LISINOPRIL [Concomitant]
  25. POTASSIUM [Concomitant]
  26. PRIMIDONE [Concomitant]
  27. QUETIAPINE [Concomitant]
  28. LIPITOR [Concomitant]
  29. ZAROXOLYN [Concomitant]
  30. PAXIL [Concomitant]
  31. AMIODARONE HCL [Concomitant]
  32. GLUCOPHAGE [Concomitant]
  33. LEVOXYL [Concomitant]
  34. PORTONIX [Concomitant]
  35. PRILOSEC [Concomitant]
  36. PROZAC [Concomitant]
  37. COUMADIN [Concomitant]
  38. ELAVIL [Concomitant]
  39. GLYNASE [Concomitant]
  40. ZANTAC [Concomitant]
  41. ASPIRIN [Concomitant]
  42. ATROVENT [Concomitant]
  43. MYSOLINE [Concomitant]
  44. AVANDIA [Concomitant]
  45. LORTAB [Concomitant]
  46. BUMEX [Concomitant]
  47. LAMIOTAL [Concomitant]

REACTIONS (15)
  - ACUTE RESPIRATORY FAILURE [None]
  - ANAEMIA [None]
  - CARDIAC FAILURE CONGESTIVE [None]
  - CARDIO-RESPIRATORY ARREST [None]
  - CORONARY ARTERY DISEASE [None]
  - DILATATION VENTRICULAR [None]
  - DYSPNOEA [None]
  - ECONOMIC PROBLEM [None]
  - HYPOXIC ENCEPHALOPATHY [None]
  - MULTIPLE INJURIES [None]
  - MYOCARDIAL INFARCTION [None]
  - OEDEMA PERIPHERAL [None]
  - RENAL FAILURE ACUTE [None]
  - SEPSIS [None]
  - SURGERY [None]
